FAERS Safety Report 8449266-1 (Version None)
Quarter: 2012Q2

REPORT INFORMATION
  Report Type: 
  Country: None (occurrence: None)
  Receive Date: 20120619
  Receipt Date: 20120611
  Transmission Date: 20120825
  Serious: Yes (Other)
  Sender: FDA-Public Use
  Company Number: DE-BAXTER-2011BH039108

PATIENT
  Sex: Female
  Weight: 82 kg

DRUGS (2)
  1. ARTISS [Suspect]
     Indication: ABDOMINOPLASTY
     Route: 065
     Dates: start: 20111129
  2. VAGANTIN [Concomitant]
     Route: 065

REACTIONS (3)
  - BACTERIAL TEST POSITIVE [None]
  - POSTOPERATIVE WOUND INFECTION [None]
  - WOUND DEHISCENCE [None]
